FAERS Safety Report 15658913 (Version 1)
Quarter: 2018Q4

REPORT INFORMATION
  Report Type: Spontaneous
  Country: US (occurrence: US)
  Receive Date: 20181126
  Receipt Date: 20181126
  Transmission Date: 20190205
  Serious: No
  Sender: FDA-Public Use
  Company Number: US-009507513-1811USA008104

PATIENT
  Age: 33 Year
  Sex: Female

DRUGS (2)
  1. MENOPUR [Suspect]
     Active Substance: FOLLITROPIN\LUTEINIZING HORMONE
     Indication: INFERTILITY FEMALE
     Dosage: 75 INTERNATIONAL UNIT, QD
     Route: 058
     Dates: start: 20181102
  2. FOLLISTIM AQ [Suspect]
     Active Substance: FOLLITROPIN
     Indication: INFERTILITY FEMALE
     Dosage: 150 INTERNATIONAL UNIT, QD
     Route: 058
     Dates: start: 20181102

REACTIONS (1)
  - Headache [Unknown]

NARRATIVE: CASE EVENT DATE: 2018
